FAERS Safety Report 13913164 (Version 1)
Quarter: 2017Q3

REPORT INFORMATION
  Report Type: Spontaneous
  Country: US (occurrence: US)
  Receive Date: 20170828
  Receipt Date: 20170828
  Transmission Date: 20171127
  Serious: No
  Sender: FDA-Public Use
  Company Number: US-ROCHE-1128849

PATIENT
  Age: 16 Year
  Sex: Male
  Weight: 45 kg

DRUGS (2)
  1. NUTROPIN AQ [Suspect]
     Active Substance: SOMATROPIN
     Indication: PRODUCT USED FOR UNKNOWN INDICATION
     Dosage: SIG: 1.9, 7 INJECTIONS PER WEEK
     Route: 058
     Dates: start: 19971210
  2. NUTROPIN AQ [Suspect]
     Active Substance: SOMATROPIN
     Dosage: 00.48 CC EVERY DAY
     Route: 058

REACTIONS (3)
  - Fatigue [Unknown]
  - Headache [Unknown]
  - Injection site pain [Unknown]

NARRATIVE: CASE EVENT DATE: 20000830
